FAERS Safety Report 18320629 (Version 2)
Quarter: 2021Q3

REPORT INFORMATION
  Report Type: Spontaneous
  Country: DE (occurrence: DE)
  Receive Date: 20200929
  Receipt Date: 20210717
  Transmission Date: 20211014
  Serious: Yes (Other)
  Sender: FDA-Public Use
  Company Number: DE-AUROBINDO-AUR-APL-2020-049520

PATIENT
  Age: 72 Year
  Sex: Male

DRUGS (9)
  1. QUETIAPINE. [Suspect]
     Active Substance: QUETIAPINE
     Indication: PRODUCT USED FOR UNKNOWN INDICATION
     Dosage: UNK
     Route: 065
  2. LEVODOPA [Suspect]
     Active Substance: LEVODOPA
     Indication: TREMOR
     Dosage: UNK
     Route: 065
  3. LITHIOFOR [Suspect]
     Active Substance: LITHIUM SULFATE
     Dosage: UNK
     Route: 048
  4. LITHIOFOR [Suspect]
     Active Substance: LITHIUM SULFATE
     Indication: PRODUCT USED FOR UNKNOWN INDICATION
     Dosage: UNK
     Route: 048
  5. TRAZODONE [Suspect]
     Active Substance: TRAZODONE HYDROCHLORIDE
     Dosage: 300 MILLIGRAM
     Route: 065
  6. BENSERAZIDE [Suspect]
     Active Substance: BENSERAZIDE
     Indication: TREMOR
     Dosage: UNK
     Route: 065
  7. BUPROPION. [Suspect]
     Active Substance: BUPROPION
     Indication: PRODUCT USED FOR UNKNOWN INDICATION
     Dosage: 300 MILLIGRAM
     Route: 065
  8. BUPROPION. [Suspect]
     Active Substance: BUPROPION
     Indication: DEPRESSIVE SYMPTOM
     Dosage: UNK
     Route: 065
  9. TRAZODONE [Suspect]
     Active Substance: TRAZODONE HYDROCHLORIDE
     Indication: PRODUCT USED FOR UNKNOWN INDICATION
     Dosage: UNK
     Route: 065

REACTIONS (9)
  - Tremor [Recovered/Resolved]
  - Delirium [Recovered/Resolved]
  - Bradyphrenia [Recovered/Resolved]
  - Depression [Recovered/Resolved]
  - Encephalopathy [Recovered/Resolved]
  - Hallucination, visual [Recovered/Resolved]
  - Weight increased [Recovered/Resolved]
  - Ataxia [Recovered/Resolved]
  - Altered state of consciousness [Recovered/Resolved]
